FAERS Safety Report 8045090-2 (Version None)
Quarter: 2012Q1

REPORT INFORMATION
  Report Type: 
  Country: None (occurrence: None)
  Receive Date: 20120113
  Receipt Date: 20120111
  Transmission Date: 20120608
  Serious: Yes (Death, Other)
  Sender: FDA-Public Use
  Company Number: PHHY2011CA74434

PATIENT
  Sex: Female

DRUGS (3)
  1. ZOLEDRONOC ACID [Suspect]
     Indication: OSTEOPOROSIS
     Dosage: UNK UKN, UNK
     Route: 042
     Dates: start: 20091021
  2. ZOLEDRONOC ACID [Suspect]
     Dosage: UNK UKN, UNK
     Route: 042
     Dates: start: 20111025
  3. ZOLEDRONOC ACID [Suspect]
     Dosage: UNK UKN, UNK
     Route: 042
     Dates: start: 20101022

REACTIONS (9)
  - GENERAL PHYSICAL CONDITION ABNORMAL [None]
  - FRACTURE [None]
  - COUGH [None]
  - DYSPNOEA [None]
  - NEOPLASM MALIGNANT [None]
  - DECREASED ACTIVITY [None]
  - VITAMIN D DECREASED [None]
  - BONE DENSITY DECREASED [None]
  - ROAD TRAFFIC ACCIDENT [None]
